FAERS Safety Report 14700242 (Version 1)
Quarter: 2018Q1

REPORT INFORMATION
  Report Type: Spontaneous
  Country: US (occurrence: US)
  Receive Date: 20180330
  Receipt Date: 20180330
  Transmission Date: 20180509
  Serious: No
  Sender: FDA-Public Use
  Company Number: US-009507513-1803USA011698

PATIENT
  Sex: Female
  Weight: 61.22 kg

DRUGS (4)
  1. LOMOTIL (LOPERAMIDE HYDROCHLORIDE) [Concomitant]
     Active Substance: LOPERAMIDE HYDROCHLORIDE
  2. FAMOTIDINE. [Concomitant]
     Active Substance: FAMOTIDINE
  3. KEYTRUDA [Suspect]
     Active Substance: PEMBROLIZUMAB
     Indication: NEOPLASM MALIGNANT
     Dosage: UNK
     Route: 042
     Dates: start: 20171214
  4. ALPRAZOLAM. [Concomitant]
     Active Substance: ALPRAZOLAM

REACTIONS (6)
  - Frequent bowel movements [Unknown]
  - Back pain [Recovering/Resolving]
  - Increased appetite [Unknown]
  - Weight decreased [Unknown]
  - Pruritus [Recovering/Resolving]
  - Fatigue [Recovering/Resolving]

NARRATIVE: CASE EVENT DATE: 2018
